FAERS Safety Report 7767979-1 (Version None)
Quarter: 2011Q3

REPORT INFORMATION
  Report Type: 
  Country: None (occurrence: None)
  Receive Date: 20110922
  Receipt Date: 20110418
  Transmission Date: 20111222
  Serious: Yes (Other)
  Sender: FDA-Public Use
  Company Number: US-ASTRAZENECA-2007UW05361

PATIENT
  Age: 58 Year
  Sex: Female
  Weight: 95.3 kg

DRUGS (11)
  1. SEROQUEL [Suspect]
     Indication: SCHIZOPHRENIA
     Route: 048
     Dates: start: 20020101, end: 20070101
  2. RISPERDAL [Concomitant]
  3. FLUOXETINE [Concomitant]
     Dates: start: 20020506
  4. PROZAC [Concomitant]
  5. SEROQUEL [Suspect]
     Indication: DEPRESSION
     Route: 048
     Dates: start: 20020101, end: 20070101
  6. SEROQUEL [Suspect]
     Route: 048
     Dates: start: 20020528
  7. SEROQUEL [Suspect]
     Route: 048
     Dates: start: 20020528
  8. CLONAZEPAM [Concomitant]
     Dates: start: 20020429
  9. SEROQUEL [Suspect]
     Indication: SLEEP DISORDER
     Route: 048
     Dates: start: 20020101, end: 20070101
  10. SEROQUEL [Suspect]
     Route: 048
     Dates: start: 20020528
  11. ALPRAZOLAM [Concomitant]
     Dates: start: 20020528

REACTIONS (4)
  - KETOACIDOSIS [None]
  - TYPE 2 DIABETES MELLITUS [None]
  - PANCREATITIS [None]
  - RESTLESS LEGS SYNDROME [None]
